FAERS Safety Report 15613993 (Version 1)
Quarter: 2018Q4

REPORT INFORMATION
  Report Type: Report from Study
  Country: US (occurrence: US)
  Receive Date: 20181113
  Receipt Date: 20181113
  Transmission Date: 20190205
  Serious: Yes (Other)
  Sender: FDA-Public Use
  Company Number: US-BAYER-2018-205815

PATIENT
  Age: 60 Year
  Sex: Male

DRUGS (1)
  1. NEXAVAR [Suspect]
     Active Substance: SORAFENIB
     Indication: HEPATOCELLULAR CARCINOMA
     Dosage: 200 MG, BID
     Route: 048
     Dates: start: 20181103, end: 20181104

REACTIONS (9)
  - Gastrointestinal pain [Recovered/Resolved with Sequelae]
  - Hypophagia [Recovering/Resolving]
  - Abdominal pain upper [Recovered/Resolved with Sequelae]
  - Hyperkeratosis [Recovered/Resolved]
  - Constipation [Not Recovered/Not Resolved]
  - Gait inability [None]
  - Dysstasia [None]
  - Off label use [None]
  - Rash macular [Recovered/Resolved]

NARRATIVE: CASE EVENT DATE: 20181103
